FAERS Safety Report 20051325 (Version 1)
Quarter: 2021Q4

REPORT INFORMATION
  Report Type: Spontaneous
  Country: US (occurrence: US)
  Receive Date: 20211110
  Receipt Date: 20211110
  Transmission Date: 20220303
  Serious: Yes (Hospitalization, Other)
  Sender: FDA-Public Use
  Company Number: US-SA-SAC20211011000315

PATIENT
  Age: 55 Year
  Sex: Male
  Weight: 117.91 kg

DRUGS (7)
  1. DUPIXENT [Suspect]
     Active Substance: DUPILUMAB
     Indication: Nasal polyps
     Dosage: 300 MG, QOW
     Route: 058
     Dates: start: 20191218
  2. ADVAIR HFA [Concomitant]
     Active Substance: FLUTICASONE PROPIONATE\SALMETEROL XINAFOATE
     Indication: Asthma-chronic obstructive pulmonary disease overlap syndrome
     Dosage: 2 DF, BID
     Route: 055
  3. PROVENTIL HFA [Concomitant]
     Active Substance: ALBUTEROL SULFATE
     Indication: Asthma-chronic obstructive pulmonary disease overlap syndrome
     Dosage: 1-2 PUFF USING INHALER EVERY FOUR TO SIX HOURS AS NEEDED
     Route: 055
  4. ASPIRIN [Concomitant]
     Active Substance: ASPIRIN
     Dosage: 2 DF, BID
     Route: 048
  5. FEXOFENADINE [Concomitant]
     Active Substance: FEXOFENADINE HYDROCHLORIDE
     Dosage: 2 DF, BID
  6. ATORVASTATIN [Concomitant]
     Active Substance: ATORVASTATIN
     Dosage: UNK
  7. VITAMINS [Concomitant]
     Active Substance: VITAMINS
     Dosage: UNK
     Route: 048

REACTIONS (10)
  - Atrial fibrillation [Unknown]
  - Tachycardia [Unknown]
  - Dyspnoea [Unknown]
  - Cardiomyopathy [Recovered/Resolved]
  - Dyspnoea exertional [Unknown]
  - Asthma-chronic obstructive pulmonary disease overlap syndrome [Unknown]
  - Thermal burn [Recovered/Resolved]
  - Rhinorrhoea [Unknown]
  - Dyspepsia [Unknown]
  - SARS-CoV-2 test negative [Unknown]

NARRATIVE: CASE EVENT DATE: 20210929
